FAERS Safety Report 19075206 (Version 1)
Quarter: 2021Q1

REPORT INFORMATION
  Report Type: Spontaneous
  Country: US (occurrence: US)
  Receive Date: 20210330
  Receipt Date: 20210330
  Transmission Date: 20210420
  Serious: No
  Sender: FDA-Public Use
  Company Number: US-FRESENIUS KABI-FK202103271

PATIENT
  Age: 69 Year
  Sex: Female
  Weight: 83.91 kg

DRUGS (2)
  1. COVID?19 VACCINE [Concomitant]
     Indication: COVID-19 PROPHYLAXIS
     Route: 030
     Dates: start: 20210313
  2. DILAUDID [Suspect]
     Active Substance: HYDROMORPHONE HYDROCHLORIDE
     Indication: PRODUCT USED FOR UNKNOWN INDICATION
     Dates: start: 20210315

REACTIONS (1)
  - Drug ineffective [Unknown]

NARRATIVE: CASE EVENT DATE: 20210315
